FAERS Safety Report 5814976-9 (Version None)
Quarter: 2008Q3

REPORT INFORMATION
  Report Type: 
  Country: None (occurrence: None)
  Receive Date: 20080718
  Receipt Date: 20080715
  Transmission Date: 20090109
  Serious: Yes (Death, Hospitalization, Other)
  Sender: FDA-Public Use
  Company Number: PHBS2008KW05128

PATIENT
  Age: 37 Year
  Sex: Male

DRUGS (4)
  1. IMATINIB MESYLATE [Suspect]
     Indication: CHRONIC MYELOID LEUKAEMIA
     Dosage: 600 MG, DAY
  2. IMATINIB MESYLATE [Suspect]
     Dosage: 800 MG, DAY
     Dates: start: 20040601
  3. FLUDARABINE PHOSPHATE [Concomitant]
  4. CYTARABINE [Concomitant]

REACTIONS (11)
  - BLAST CELLS PRESENT [None]
  - BLAST CRISIS IN MYELOGENOUS LEUKAEMIA [None]
  - BONE MARROW TRANSPLANT [None]
  - CHRONIC GRAFT VERSUS HOST DISEASE [None]
  - DEATH [None]
  - DYSPNOEA [None]
  - LOWER RESPIRATORY TRACT INFECTION [None]
  - MALAISE [None]
  - NO THERAPEUTIC RESPONSE [None]
  - OBSTRUCTIVE AIRWAYS DISORDER [None]
  - PYREXIA [None]
